FAERS Safety Report 23349265 (Version 1)
Quarter: 2023Q4

REPORT INFORMATION
  Report Type: Report from Study
  Country: CA (occurrence: CA)
  Receive Date: 20231229
  Receipt Date: 20231229
  Transmission Date: 20240109
  Serious: Yes (Death)
  Sender: FDA-Public Use
  Company Number: CA-BAYER-2023A185591

PATIENT
  Age: 58 Year
  Sex: Male

DRUGS (2)
  1. EYLEA [Suspect]
     Active Substance: AFLIBERCEPT
     Indication: Diabetic retinal oedema
     Dosage: UNK, SOLUTION FOR INJECTION, 40  MG/ML
     Dates: start: 20200307, end: 20200307
  2. EYLEA [Suspect]
     Active Substance: AFLIBERCEPT
     Dosage: UNK, SOLUTION FOR INJECTION, 40  MG/ML
     Dates: start: 20220824, end: 20220824

REACTIONS (1)
  - Death [Fatal]
